FAERS Safety Report 17835870 (Version 4)
Quarter: 2020Q3

REPORT INFORMATION
  Report Type: Report from Study
  Country: US (occurrence: US)
  Receive Date: 20200528
  Receipt Date: 20200922
  Transmission Date: 20201103
  Serious: Yes (Other)
  Sender: FDA-Public Use
  Company Number: US-B.I. PHARMACEUTICALS,INC./RIDGEFIELD-2019-BI-102186

PATIENT
  Age: 81 Year
  Sex: Male

DRUGS (6)
  1. OFEV [Suspect]
     Active Substance: NINTEDANIB
  2. OFEV [Suspect]
     Active Substance: NINTEDANIB
     Indication: IDIOPATHIC PULMONARY FIBROSIS
     Dosage: 1 CAPSULE BID
     Route: 048
     Dates: start: 20190807
  3. OFEV [Suspect]
     Active Substance: NINTEDANIB
  4. OFEV [Suspect]
     Active Substance: NINTEDANIB
  5. OFEV [Suspect]
     Active Substance: NINTEDANIB
  6. OFEV [Suspect]
     Active Substance: NINTEDANIB

REACTIONS (17)
  - Rash pruritic [Not Recovered/Not Resolved]
  - Constipation [Recovered/Resolved]
  - Nasopharyngitis [Not Recovered/Not Resolved]
  - Cardiac pacemaker insertion [Unknown]
  - Diarrhoea [Not Recovered/Not Resolved]
  - Dyspnoea [Unknown]
  - Decreased appetite [Unknown]
  - Oropharyngeal pain [Not Recovered/Not Resolved]
  - Pruritus [Recovering/Resolving]
  - Peripheral swelling [Not Recovered/Not Resolved]
  - Diarrhoea [Not Recovered/Not Resolved]
  - Pruritus [Not Recovered/Not Resolved]
  - Joint swelling [Not Recovered/Not Resolved]
  - Diarrhoea [Unknown]
  - Asthenia [Not Recovered/Not Resolved]
  - Dry skin [Not Recovered/Not Resolved]
  - Peripheral swelling [Recovering/Resolving]

NARRATIVE: CASE EVENT DATE: 201912
